FAERS Safety Report 18540483 (Version 1)
Quarter: 2020Q4

REPORT INFORMATION
  Report Type: Spontaneous
  Country: US (occurrence: US)
  Receive Date: 20201124
  Receipt Date: 20201124
  Transmission Date: 20210114
  Serious: No
  Sender: FDA-Public Use
  Company Number: US-PFIZER INC-2020459251

PATIENT
  Age: 64 Year
  Sex: Female
  Weight: 76.2 kg

DRUGS (1)
  1. IBRANCE [Suspect]
     Active Substance: PALBOCICLIB
     Indication: BREAST CANCER METASTATIC
     Dosage: 75 MG, CYCLIC (TAKE ON DAYS 1-21)
     Route: 048
     Dates: start: 202005

REACTIONS (2)
  - Fine motor skill dysfunction [Unknown]
  - Product dose omission issue [Unknown]
